FAERS Safety Report 7958546-5 (Version None)
Quarter: 2011Q4

REPORT INFORMATION
  Report Type: 
  Country: None (occurrence: None)
  Receive Date: 20111206
  Receipt Date: 20111201
  Transmission Date: 20120403
  Serious: No
  Sender: FDA-Public Use
  Company Number: US-BIOGENIDEC-2010BI042596

PATIENT
  Sex: Female

DRUGS (3)
  1. TYSABRI [Suspect]
     Indication: MULTIPLE SCLEROSIS
     Route: 042
     Dates: start: 20101111
  2. TYSABRI [Suspect]
     Indication: CROHN'S DISEASE
     Route: 042
     Dates: start: 20101111
  3. PROVIGIL [Concomitant]
     Indication: FATIGUE

REACTIONS (13)
  - DYSKINESIA [None]
  - MOUTH ULCERATION [None]
  - INFLUENZA [None]
  - INTERVERTEBRAL DISC PROTRUSION [None]
  - CHILLS [None]
  - OROPHARYNGEAL PAIN [None]
  - WEIGHT DECREASED [None]
  - NECK MASS [None]
  - MUSCLE SPASTICITY [None]
  - HUNGER [None]
  - SCOLIOSIS [None]
  - COLITIS ULCERATIVE [None]
  - CROHN'S DISEASE [None]
